FAERS Safety Report 25477363 (Version 1)
Quarter: 2025Q2

REPORT INFORMATION
  Report Type: Report from Study
  Country: US (occurrence: US)
  Receive Date: 20250625
  Receipt Date: 20250625
  Transmission Date: 20250716
  Serious: Yes (Other)
  Sender: TAKEDA
  Company Number: US-TAKEDA-2022TUS089288

PATIENT
  Sex: Male
  Weight: 149 kg

DRUGS (2)
  1. BRIGATINIB [Suspect]
     Active Substance: BRIGATINIB
     Indication: Lung neoplasm malignant
     Dosage: 180 MILLIGRAM, QD
     Dates: start: 20170517
  2. BRIGATINIB [Suspect]
     Active Substance: BRIGATINIB
     Dosage: 180 MILLIGRAM, QD

REACTIONS (9)
  - Seizure [Unknown]
  - Fall [Unknown]
  - Gout [Recovered/Resolved]
  - Nausea [Unknown]
  - Fatigue [Unknown]
  - Blood creatine phosphokinase increased [Unknown]
  - Diarrhoea [Unknown]
  - Constipation [Unknown]
  - Headache [Unknown]
